FAERS Safety Report 10236882 (Version 1)
Quarter: 2014Q1

REPORT INFORMATION
  Report Type: Spontaneous
  Country: US (occurrence: None)
  Receive Date: 20140306
  Receipt Date: 20140306
  Transmission Date: 20141002
  Serious: Yes (Hospitalization)
  Sender: FDA-Public Use
  Company Number: 163-21880-13092377

PATIENT
  Sex: Female

DRUGS (1)
  1. REVLIMID (LENALIDOMIDE) [Suspect]
     Indication: PLASMA CELL MYELOMA
     Route: 048
     Dates: end: 201004

REACTIONS (6)
  - Irritable bowel syndrome [None]
  - Blood pressure abnormal [None]
  - Nausea [None]
  - Gastrooesophageal reflux disease [None]
  - Decreased appetite [None]
  - Weight decreased [None]
